FAERS Safety Report 8425771 (Version 2)
Quarter: 2013Q2

REPORT INFORMATION
  Report Type: Report from Study
  Country: BR (occurrence: BR)
  Receive Date: 20120224
  Receipt Date: 20130607
  Transmission Date: 20140414
  Serious: Yes (Death, Hospitalization)
  Sender: FDA-Public Use
  Company Number: BR-ACTELION-A-CH2011-57295

PATIENT
  Age: 51 Year
  Sex: Female
  Weight: 56 kg

DRUGS (9)
  1. TRACLEER [Suspect]
     Indication: PULMONARY ARTERIAL HYPERTENSION
     Dosage: 125 MG, BID
     Route: 048
     Dates: end: 20120705
  2. TRACLEER [Suspect]
     Dosage: 62.5 MG, BID
     Route: 048
     Dates: start: 20070105
  3. LASIX [Concomitant]
  4. COLCHICINE [Concomitant]
  5. OMEPRAZOLE [Concomitant]
  6. HYDROCHLOROTHIAZIDE [Concomitant]
  7. AMIODARONE [Concomitant]
  8. SPIRONOLACTONE [Concomitant]
  9. HYDROXYZINE [Concomitant]

REACTIONS (7)
  - Pulmonary arterial hypertension [Fatal]
  - Condition aggravated [Fatal]
  - Dyspnoea [Fatal]
  - Tachycardia [Fatal]
  - Malaise [Fatal]
  - Heart rate irregular [Fatal]
  - Oedema peripheral [Fatal]
